FAERS Safety Report 6092560-2 (Version None)
Quarter: 2009Q1

REPORT INFORMATION
  Report Type: 
  Country: None (occurrence: None)
  Receive Date: 20090225
  Receipt Date: 20090220
  Transmission Date: 20090719
  Serious: Yes (Hospitalization)
  Sender: FDA-Public Use
  Company Number: FR-SANOFI-SYNTHELABO-A02200900454

PATIENT
  Sex: Female

DRUGS (4)
  1. SOLU-MEDROL [Concomitant]
     Route: 042
     Dates: start: 20081229, end: 20081229
  2. AVASTIN [Concomitant]
     Route: 041
     Dates: start: 20081229, end: 20081229
  3. TOMUDEX [Concomitant]
     Route: 042
     Dates: start: 20081229, end: 20081229
  4. ELOXATIN [Suspect]
     Indication: COLORECTAL CANCER RECURRENT
     Route: 042
     Dates: start: 20081229, end: 20081229

REACTIONS (3)
  - MUSCLE CONTRACTURE [None]
  - MUSCLE SPASMS [None]
  - PARAESTHESIA [None]
